FAERS Safety Report 11319967 (Version 5)
Quarter: 2015Q4

REPORT INFORMATION
  Report Type: Report from Study
  Country: US (occurrence: US)
  Receive Date: 20150729
  Receipt Date: 20151118
  Transmission Date: 20160304
  Serious: Yes (Death, Other)
  Sender: FDA-Public Use
  Company Number: US-BIOGENIDEC-2015BI103118

PATIENT
  Age: 64 Year
  Sex: Female
  Weight: 100 kg

DRUGS (28)
  1. RANITADINE HCL [Concomitant]
     Dates: end: 20150710
  2. VALTREX [Concomitant]
     Active Substance: VALACYCLOVIR HYDROCHLORIDE
     Dates: end: 20150710
  3. MIRTAZAPINE. [Concomitant]
     Active Substance: MIRTAZAPINE
     Dates: end: 20150710
  4. ALPRAZOLAM. [Concomitant]
     Active Substance: ALPRAZOLAM
     Dates: end: 20150710
  5. NORCO [Concomitant]
     Active Substance: ACETAMINOPHEN\HYDROCODONE BITARTRATE
     Dates: end: 20150710
  6. CHONDROITIN/GLUCOSAMINE [Concomitant]
     Active Substance: CHONDROITIN SULFATE (BOVINE)\GLUCOSAMINE SULFATE
     Dates: end: 20150710
  7. DIOVAN HCT [Concomitant]
     Active Substance: HYDROCHLOROTHIAZIDE\VALSARTAN
     Dates: end: 20150710
  8. PAROXETINE [Concomitant]
     Active Substance: PAROXETINE\PAROXETINE HYDROCHLORIDE
     Dates: end: 20150710
  9. VITAMIN D 2000 [Concomitant]
     Route: 048
     Dates: end: 20150710
  10. NAMENDA XR [Concomitant]
     Active Substance: MEMANTINE HYDROCHLORIDE
  11. OXYBUTYNIN CHLORIDE ER [Concomitant]
     Active Substance: OXYBUTYNIN CHLORIDE
  12. ABILIFY [Concomitant]
     Active Substance: ARIPIPRAZOLE
     Dates: end: 20150710
  13. MELOXICAM. [Concomitant]
     Active Substance: MELOXICAM
     Dates: end: 20150710
  14. TRAMADOL. [Concomitant]
     Active Substance: TRAMADOL
     Dates: end: 20150710
  15. VESICARE [Concomitant]
     Active Substance: SOLIFENACIN SUCCINATE
     Dates: end: 20150710
  16. GLUCOSAMINE CHONDROITIN COMPLEX [Concomitant]
     Active Substance: CHONDROITIN SULFATE (BOVINE)\GLUCOSAMINE HYDROCHLORIDE
  17. LEVOTHYROXINE. [Concomitant]
     Active Substance: LEVOTHYROXINE
     Dates: end: 20150710
  18. SUDAFED 12 HOUR [Concomitant]
     Active Substance: PSEUDOEPHEDRINE HYDROCHLORIDE
     Route: 048
     Dates: end: 20150710
  19. LEVOTHYROXINE SODIUM. [Concomitant]
     Active Substance: LEVOTHYROXINE SODIUM
  20. ARIMIDEX [Concomitant]
     Active Substance: ANASTROZOLE
     Dates: end: 20150710
  21. LUNESTA [Concomitant]
     Active Substance: ESZOPICLONE
     Dates: end: 20150710
  22. TRIAZOLAM. [Concomitant]
     Active Substance: TRIAZOLAM
     Dates: end: 20150710
  23. TECFIDERA [Suspect]
     Active Substance: DIMETHYL FUMARATE
     Indication: MULTIPLE SCLEROSIS
     Route: 048
     Dates: start: 201409
  24. CARVEDILOL. [Concomitant]
     Active Substance: CARVEDILOL
     Dates: end: 20150710
  25. OMEPRAZOLE. [Concomitant]
     Active Substance: OMEPRAZOLE
     Dates: end: 20150710
  26. TECFIDERA [Suspect]
     Active Substance: DIMETHYL FUMARATE
     Indication: MULTIPLE SCLEROSIS
     Route: 048
     Dates: start: 20150514
  27. CENTRUM SILVER [Concomitant]
     Active Substance: MINERALS\VITAMINS
     Route: 048
     Dates: end: 20150710
  28. VITAMIN B COMPLEX [Concomitant]
     Active Substance: CYANOCOBALAMIN\DEXPANTHENOL\NIACINAMIDE\PYRIDOXINE HYDROCHLORIDE\RIBOFLAVIN 5^-PHOSPHATE SODIUM\THIAMINE HYDROCHLORIDE\VITAMIN B COMPLEX
     Route: 048
     Dates: end: 20150710

REACTIONS (7)
  - Lung consolidation [Unknown]
  - Urinary tract obstruction [Unknown]
  - Osteomyelitis [Unknown]
  - Pleural effusion [Unknown]
  - Invasive ductal breast carcinoma [Unknown]
  - Respiratory failure [Fatal]
  - Depression [Unknown]

NARRATIVE: CASE EVENT DATE: 20140901
